FAERS Safety Report 21183286 (Version 1)
Quarter: 2022Q3

REPORT INFORMATION
  Report Type: Other
  Country: None (occurrence: US)
  Receive Date: 20220808
  Receipt Date: 20220808
  Transmission Date: 20221027
  Serious: Yes (Other)
  Sender: FDA-Public Use
  Company Number: US-BIOLOGICAL E. LTD-2131582

PATIENT
  Age: 50 Year
  Sex: Male

DRUGS (1)
  1. HEPARIN SODIUM [Suspect]
     Active Substance: HEPARIN SODIUM
     Indication: Thrombosis
     Route: 065

REACTIONS (3)
  - Drug ineffective [Unknown]
  - Chest wall haematoma [Unknown]
  - Haematoma [Unknown]
